FAERS Safety Report 6721777-6 (Version None)
Quarter: 2010Q2

REPORT INFORMATION
  Report Type: 
  Country: None (occurrence: None)
  Receive Date: 20100510
  Receipt Date: 20100504
  Transmission Date: 20101027
  Serious: Yes (Hospitalization, Other)
  Sender: FDA-Public Use
  Company Number: 2010SP025298

PATIENT
  Age: 38 Year
  Sex: Male

DRUGS (3)
  1. CLARITIN-D [Suspect]
     Indication: MULTIPLE ALLERGIES
     Dosage: QD;PO
     Route: 048
  2. ASCORBIC ACID [Concomitant]
  3. ASPIRIN [Concomitant]

REACTIONS (1)
  - HEART RATE IRREGULAR [None]
